APPROVED DRUG PRODUCT: CLOBETASOL PROPIONATE
Active Ingredient: CLOBETASOL PROPIONATE
Strength: 0.05%
Dosage Form/Route: CREAM;TOPICAL
Application: A074392 | Product #001 | TE Code: AB1
Applicant: FOUGERA PHARMACEUTICALS INC
Approved: Sep 30, 1996 | RLD: No | RS: No | Type: RX